FAERS Safety Report 7625608-1 (Version None)
Quarter: 2011Q3

REPORT INFORMATION
  Report Type: 
  Country: None (occurrence: None)
  Receive Date: 20110721
  Receipt Date: 20110712
  Transmission Date: 20111222
  Serious: Yes (Hospitalization)
  Sender: FDA-Public Use
  Company Number: US-GENZYME-FABR-1002029

PATIENT
  Age: 60 Year
  Sex: Male
  Weight: 54.09 kg

DRUGS (35)
  1. MYFORTIC [Concomitant]
     Indication: PROPHYLAXIS AGAINST TRANSPLANT REJECTION
     Dosage: 180 MG, QD
     Route: 048
  2. LEVAQUIN [Concomitant]
     Indication: PRODUCT USED FOR UNKNOWN INDICATION
     Dosage: 750 MG, Q48H
     Route: 048
     Dates: start: 20110609, end: 20110620
  3. CARVEDILOL [Concomitant]
     Dosage: 6.25 MG, BID
     Route: 048
  4. FABRAZYME [Suspect]
     Dosage: 35 MG, UNK
     Route: 042
     Dates: start: 20100201
  5. FABRAZYME [Suspect]
     Dosage: 55 MG, UNK
     Route: 042
     Dates: start: 20101001
  6. PROGRAF [Concomitant]
     Dosage: 0.05 MG, QD
  7. CLOTRIMAZOLE [Concomitant]
     Indication: ANTIFUNGAL PROPHYLAXIS
     Dosage: 10 MG, TID
  8. BACTRIM [Concomitant]
     Indication: PROPHYLAXIS
  9. LISINOPRIL [Concomitant]
     Dosage: 30 MG, QD
     Route: 048
     Dates: start: 20110217
  10. FABRAZYME [Suspect]
     Dosage: 55 MG, UNK
     Route: 042
     Dates: start: 20100901
  11. VALCYTE [Concomitant]
     Indication: ANTIVIRAL PROPHYLAXIS
     Dosage: 450 MG, QOD
  12. DOXAZOSIN MESYLATE [Concomitant]
     Indication: PRODUCT USED FOR UNKNOWN INDICATION
     Dosage: 1 MG, BID
     Route: 048
  13. PROGRAF [Concomitant]
     Indication: PROPHYLAXIS AGAINST TRANSPLANT REJECTION
     Dosage: 1.5 MG, QD
     Route: 048
     Dates: start: 20110707
  14. SODIUM BICARBONATE [Concomitant]
     Indication: PRODUCT USED FOR UNKNOWN INDICATION
     Dosage: 1300 MG, BID (ON HOLD)
     Dates: start: 20091211
  15. LISINOPRIL [Concomitant]
     Dosage: 10 MG, QD
     Route: 048
     Dates: start: 20100609, end: 20100701
  16. CHLORTHALIDONE [Concomitant]
     Indication: PRODUCT USED FOR UNKNOWN INDICATION
     Dosage: 25 MG, QD
     Route: 048
     Dates: start: 20110616
  17. LISINOPRIL [Concomitant]
     Dosage: 20 MG, BID (HOLD)
     Route: 048
  18. FABRAZYME [Suspect]
     Dosage: 20 MG, UNK
     Route: 042
     Dates: start: 20100301
  19. FAMOTIDINE [Concomitant]
     Indication: PROPHYLAXIS
     Dosage: 20 MG, QD
     Route: 048
  20. BACTRIM [Concomitant]
     Indication: PROPHYLAXIS URINARY TRACT INFECTION
     Dosage: UNK (ON HOLD)
  21. LISINOPRIL [Concomitant]
     Indication: PRODUCT USED FOR UNKNOWN INDICATION
     Dosage: 20 MG, BID
     Route: 048
     Dates: start: 20110519
  22. ASPIRIN [Concomitant]
     Indication: PRODUCT USED FOR UNKNOWN INDICATION
     Dosage: 81 MG, QD
     Route: 048
  23. CLINDAMYCIN [Concomitant]
     Indication: PRODUCT USED FOR UNKNOWN INDICATION
     Dosage: 600 MG, PRIOR TO DENTAL APPT.
  24. PROGRAF [Concomitant]
     Dosage: 0.5 MG, QD
     Route: 048
     Dates: end: 20110701
  25. MYFORTIC [Concomitant]
     Dosage: 360 MG, BID
  26. FUROSEMIDE [Concomitant]
     Indication: DIURETIC THERAPY
     Dosage: 40 MG, QD
     Dates: start: 20091218
  27. LISINOPRIL [Concomitant]
     Dosage: 40 MG, QD
     Route: 048
     Dates: start: 20100701
  28. PROCRIT [Concomitant]
     Indication: PRODUCT USED FOR UNKNOWN INDICATION
     Dosage: 20000 U, QOW (ON HOLD)
     Dates: start: 20100901
  29. VITAMIN D [Concomitant]
     Indication: PRODUCT USED FOR UNKNOWN INDICATION
     Dosage: 50000 U, QW
  30. FABRAZYME [Suspect]
     Indication: FABRY'S DISEASE
     Dosage: 55 MG, Q28D
     Route: 042
     Dates: start: 20080509
  31. PREDNISONE [Concomitant]
     Indication: PROPHYLAXIS AGAINST TRANSPLANT REJECTION
     Dosage: 7.5 MG, QD
     Dates: start: 20091223
  32. PROCRIT [Concomitant]
     Dosage: 20000 U, QW
     Route: 058
     Dates: end: 20100901
  33. CARVEDILOL [Concomitant]
     Indication: PRODUCT USED FOR UNKNOWN INDICATION
     Dosage: 25 MG, QD
     Dates: end: 20100701
  34. NORVASC [Concomitant]
     Indication: PRODUCT USED FOR UNKNOWN INDICATION
     Dosage: 10 MG, QD (ON HOLD)
     Route: 048
  35. LORAZEPAM [Concomitant]
     Indication: PRODUCT USED FOR UNKNOWN INDICATION
     Dosage: UNK
     Dates: end: 20110401

REACTIONS (1)
  - URINARY TRACT INFECTION [None]
